FAERS Safety Report 7300674-1 (Version None)
Quarter: 2011Q1

REPORT INFORMATION
  Report Type: 
  Country: None (occurrence: None)
  Receive Date: 20110207
  Receipt Date: 20110131
  Transmission Date: 20110831
  Serious: Yes (Disabling)
  Sender: FDA-Public Use
  Company Number: OSCN-NO-1102L-0050

PATIENT
  Age: 31 Year
  Sex: Female

DRUGS (1)
  1. OMNISCAN [Suspect]
     Indication: RENAL TRANSPLANT
     Dosage: SINGLE DOSE
     Dates: start: 20031001, end: 20031001

REACTIONS (6)
  - HYPERAESTHESIA [None]
  - MYOSCLEROSIS [None]
  - FIBROSIS [None]
  - MOVEMENT DISORDER [None]
  - PERIPHERAL SENSORY NEUROPATHY [None]
  - SKIN TIGHTNESS [None]
